FAERS Safety Report 24280219 (Version 1)
Quarter: 2024Q3

REPORT INFORMATION
  Report Type: Spontaneous
  Country: FR (occurrence: None)
  Receive Date: 20240904
  Receipt Date: 20240904
  Transmission Date: 20241017
  Serious: Yes (Death, Other)
  Sender: ADDMEDICA
  Company Number: FR-CHEPLA-2024010573

PATIENT
  Age: 32 Year
  Sex: Male

DRUGS (1)
  1. HYDROXYUREA [Suspect]
     Active Substance: HYDROXYUREA
     Indication: Sickle cell disease

REACTIONS (2)
  - Myelodysplastic syndrome [Fatal]
  - Polyarteritis nodosa [Recovering/Resolving]
